FAERS Safety Report 14470415 (Version 6)
Quarter: 2018Q2

REPORT INFORMATION
  Report Type: Spontaneous
  Country: JP (occurrence: JP)
  Receive Date: 20180131
  Receipt Date: 20180517
  Transmission Date: 20180711
  Serious: Yes (Hospitalization, Other)
  Sender: FDA-Public Use
  Company Number: JP-PFIZER INC-2018040708

PATIENT
  Age: 74 Year
  Sex: Female
  Weight: 67 kg

DRUGS (4)
  1. VANCOMYCIN HCL [Suspect]
     Active Substance: VANCOMYCIN HYDROCHLORIDE
     Dosage: 1.5 G, DAILY
     Route: 041
     Dates: start: 20180116, end: 20180117
  2. NOVORAPID [Concomitant]
     Active Substance: INSULIN ASPART
     Dosage: 16 IU, DAILY
     Route: 058
     Dates: start: 20180116
  3. ZOSYN [Suspect]
     Active Substance: PIPERACILLIN SODIUM\TAZOBACTAM SODIUM
     Dosage: 2.25 G, 3X/DAY
     Route: 041
     Dates: start: 20180118, end: 20180122
  4. ZOSYN [Suspect]
     Active Substance: PIPERACILLIN SODIUM\TAZOBACTAM SODIUM
     Indication: SEPSIS
     Dosage: 4.5 G, 3X/DAY
     Route: 041
     Dates: start: 20180111, end: 20180117

REACTIONS (4)
  - Sinusitis [Unknown]
  - Drug level increased [Unknown]
  - Acute kidney injury [Recovered/Resolved]
  - Altered state of consciousness [Recovered/Resolved with Sequelae]

NARRATIVE: CASE EVENT DATE: 201801
